FAERS Safety Report 7278185-1 (Version None)
Quarter: 2011Q1

REPORT INFORMATION
  Report Type: 
  Country: None (occurrence: None)
  Receive Date: 20110207
  Receipt Date: 20110201
  Transmission Date: 20110831
  Serious: Yes (Hospitalization)
  Sender: FDA-Public Use
  Company Number: B0695569A

PATIENT
  Sex: Male

DRUGS (3)
  1. AUGMENTIN [Suspect]
     Indication: ERYSIPELAS
     Route: 050
     Dates: start: 20101218, end: 20101228
  2. LOVENOX [Concomitant]
     Indication: PHLEBITIS
     Route: 065
     Dates: start: 20101212
  3. ORBENIN CAP [Concomitant]
     Indication: ERYSIPELAS
     Route: 065
     Dates: start: 20101212, end: 20101217

REACTIONS (2)
  - MIXED LIVER INJURY [None]
  - CHOLESTASIS [None]
